FAERS Safety Report 11936514 (Version 1)
Quarter: 2016Q1

REPORT INFORMATION
  Report Type: Spontaneous
  Country: US (occurrence: US)
  Receive Date: 20160121
  Receipt Date: 20160121
  Transmission Date: 20160526
  Serious: No
  Sender: FDA-Public Use
  Company Number: US-HERITAGE PHARMA LABS INC.-1046724

PATIENT
  Age: 61 Year
  Sex: Female

DRUGS (4)
  1. NIFEDIPINE. [Suspect]
     Active Substance: NIFEDIPINE
  2. VERAPAMIL [Suspect]
     Active Substance: VERAPAMIL HYDROCHLORIDE
  3. HYDRALAZINE [Suspect]
     Active Substance: HYDRALAZINE HYDROCHLORIDE
  4. CLONIDINE. [Suspect]
     Active Substance: CLONIDINE

REACTIONS (2)
  - Cough [None]
  - Dysphonia [None]
